FAERS Safety Report 4494042-8 (Version None)
Quarter: 2004Q4

REPORT INFORMATION
  Report Type: 
  Country: None (occurrence: None)
  Receive Date: 20041105
  Receipt Date: 20041022
  Transmission Date: 20050328
  Serious: Yes (Other)
  Sender: FDA-Public Use
  Company Number: JP-MERCK-0410USA03916

PATIENT
  Age: 86 Year
  Sex: Male

DRUGS (5)
  1. PEPCID RPD [Suspect]
     Route: 048
     Dates: start: 20041006, end: 20041014
  2. PEPCID [Suspect]
     Route: 042
     Dates: start: 20040904, end: 20041005
  3. BISOLVON [Suspect]
     Route: 042
     Dates: start: 20041006, end: 20041014
  4. GASMOTIN [Suspect]
     Route: 048
     Dates: start: 20041006, end: 20041014
  5. AMINO ACIDS (UNSPECIFIED) AND CARBOHYDRATES (UNSPECIFIED) AND ELECTROL [Concomitant]
     Indication: PARENTERAL NUTRITION
     Route: 041
     Dates: start: 20040801, end: 20041005

REACTIONS (1)
  - HYPOGLYCAEMIA [None]
